FAERS Safety Report 8724178 (Version 4)
Quarter: 2013Q1

REPORT INFORMATION
  Report Type: Report from Study
  Country: PH (occurrence: PH)
  Receive Date: 20120815
  Receipt Date: 20121102
  Transmission Date: 20140127
  Serious: Yes (Death, Hospitalization)
  Sender: FDA-Public Use
  Company Number: PH-ASTRAZENECA-2012SE56686

PATIENT
  Age: 24711 Day
  Sex: Female

DRUGS (4)
  1. AZD6140 [Suspect]
     Indication: CORONARY ARTERY DISEASE
     Route: 048
     Dates: start: 20111213, end: 20120801
  2. ASA [Concomitant]
     Route: 048
     Dates: start: 20101205
  3. LOSARTAN [Concomitant]
     Indication: HYPERTENSION
     Route: 048
     Dates: start: 20101205
  4. METFORMIN [Concomitant]
     Indication: TYPE 2 DIABETES MELLITUS
     Route: 048
     Dates: start: 20101205

REACTIONS (2)
  - Pneumococcal sepsis [Fatal]
  - Aplastic anaemia [Not Recovered/Not Resolved]
